FAERS Safety Report 7947039-7 (Version None)
Quarter: 2011Q4

REPORT INFORMATION
  Report Type: 
  Country: None (occurrence: None)
  Receive Date: 20111129
  Receipt Date: 20111018
  Transmission Date: 20120403
  Serious: No
  Sender: FDA-Public Use
  Company Number: US-ASTRAZENECA-2011SE57378

PATIENT
  Age: 47 Year
  Sex: Female
  Weight: 68 kg

DRUGS (1)
  1. VIMOVO [Suspect]
     Indication: OSTEOARTHRITIS
     Dosage: 500MG/20MG BID
     Route: 048
     Dates: start: 20110701, end: 20110801

REACTIONS (3)
  - PLATELET COUNT INCREASED [None]
  - CONTUSION [None]
  - EPISTAXIS [None]
